FAERS Safety Report 6179862-6 (Version None)
Quarter: 2009Q2

REPORT INFORMATION
  Report Type: 
  Country: None (occurrence: None)
  Receive Date: 20090505
  Receipt Date: 20090407
  Transmission Date: 20091009
  Serious: No
  Sender: FDA-Public Use
  Company Number: US-ALEXION-A200900163

PATIENT
  Sex: Male

DRUGS (13)
  1. SOLIRIS [Suspect]
     Indication: PAROXYSMAL NOCTURNAL HAEMOGLOBINURIA
     Dosage: 600 MG, QW
     Route: 042
     Dates: start: 20070829
  2. SOLIRIS [Suspect]
     Dosage: 900 MG, Q2W
     Route: 042
  3. LANTUS [Concomitant]
     Indication: DIABETES MELLITUS
     Dosage: 44 UT, QD
  4. NOVOLIN                            /00030501/ [Concomitant]
     Indication: DIABETES MELLITUS
     Dosage: 14-23 UT, TID
  5. PREDNISONE [Concomitant]
     Indication: PAROXYSMAL NOCTURNAL HAEMOGLOBINURIA
     Dosage: 10 MG, QD
     Route: 048
  6. HEMATINIC FE [Concomitant]
     Indication: MINERAL SUPPLEMENTATION
     Dosage: UNK
     Route: 048
  7. ZOLPIDEM [Concomitant]
     Indication: SLEEP DISORDER
     Dosage: 10 MG, QD
     Route: 048
  8. CARTIA XT                          /00489701/ [Concomitant]
     Indication: PROPHYLAXIS
     Dosage: 240 MG, QD
     Route: 048
  9. FUROSEMIDE [Concomitant]
     Indication: PROPHYLAXIS
     Dosage: 40 MG, TIW
     Route: 048
  10. GLUCOSAMINE [Concomitant]
     Indication: PROPHYLAXIS
     Dosage: 750 MG, QD
     Route: 048
  11. VITAMIN C                          /00008001/ [Concomitant]
     Indication: PROPHYLAXIS
     Dosage: 500 MG, QD
     Route: 048
  12. ALENDRONATE SODIUM [Concomitant]
     Indication: OSTEOPOROSIS
     Dosage: 70 MG, QW
     Route: 048
  13. MULTIVITAMIN                       /00831701/ [Concomitant]
     Dosage: UNK, QD
     Route: 048

REACTIONS (1)
  - VITAMIN D DECREASED [None]
